FAERS Safety Report 9767323 (Version 3)
Quarter: 2016Q1

REPORT INFORMATION
  Report Type: Spontaneous
  Country: US (occurrence: US)
  Receive Date: 20131217
  Receipt Date: 20160112
  Transmission Date: 20160526
  Serious: Yes (Congenital Anomaly, Other)
  Sender: FDA-Public Use
  Company Number: US-ELI_LILLY_AND_COMPANY-US201312003325

PATIENT
  Age: 7 Year

DRUGS (1)
  1. PROZAC [Suspect]
     Active Substance: FLUOXETINE HYDROCHLORIDE
     Indication: PRODUCT USED FOR UNKNOWN INDICATION
     Dosage: 1 DF, UNKNOWN
     Route: 064

REACTIONS (5)
  - Foetal exposure timing unspecified [Unknown]
  - Premature baby [Unknown]
  - Exomphalos [Unknown]
  - Attention deficit/hyperactivity disorder [Unknown]
  - Gastroschisis [Unknown]

NARRATIVE: CASE EVENT DATE: 20150806
